FAERS Safety Report 11191961 (Version 1)
Quarter: 2015Q2

REPORT INFORMATION
  Report Type: Spontaneous
  Country: BR (occurrence: BR)
  Receive Date: 20150616
  Receipt Date: 20150616
  Transmission Date: 20150821
  Serious: Yes (Hospitalization, Other)
  Sender: FDA-Public Use
  Company Number: BR-SA-2014SA129854

PATIENT
  Sex: Female
  Weight: 78 kg

DRUGS (4)
  1. CLEXANE [Suspect]
     Active Substance: ENOXAPARIN SODIUM
     Indication: HYPERCOAGULATION
     Route: 065
     Dates: start: 201409
  2. AAS INFANTIL [Suspect]
     Active Substance: ASPIRIN
     Indication: HYPERCOAGULATION
     Dosage: STRENGTH: 100MG DOSE:1 UNIT(S)
     Route: 048
     Dates: start: 201407, end: 20150317
  3. PROGESTERONE. [Concomitant]
     Active Substance: PROGESTERONE
     Indication: PROPHYLAXIS
     Route: 048
  4. FOLIC ACID. [Concomitant]
     Active Substance: FOLIC ACID
     Indication: PROPHYLAXIS
     Dosage: START DATE: JANUARY
     Route: 048

REACTIONS (4)
  - Amniotic fluid volume decreased [Unknown]
  - Drug ineffective [Unknown]
  - Oedema [Recovered/Resolved]
  - Exposure during pregnancy [Unknown]

NARRATIVE: CASE EVENT DATE: 2014
